FAERS Safety Report 19412328 (Version 9)
Quarter: 2022Q1

REPORT INFORMATION
  Report Type: Other
  Country: CA (occurrence: CA)
  Receive Date: 20210614
  Receipt Date: 20220222
  Transmission Date: 20220423
  Serious: Yes (Life-Threatening, Hospitalization, Disabling, Other)
  Sender: FDA-Public Use
  Company Number: CA-APOTEX-2021AP013698

PATIENT
  Age: 30 Year
  Sex: Male

DRUGS (39)
  1. EZETIMIBE [Suspect]
     Active Substance: EZETIMIBE
     Indication: Low density lipoprotein abnormal
     Dosage: UNK
     Route: 048
  2. EZETIMIBE [Suspect]
     Active Substance: EZETIMIBE
     Indication: Low density lipoprotein
  3. PRAVASTATIN [Suspect]
     Active Substance: PRAVASTATIN
     Indication: Low density lipoprotein abnormal
     Dosage: UNK
     Route: 065
  4. PRAVASTATIN [Suspect]
     Active Substance: PRAVASTATIN
     Indication: Low density lipoprotein
  5. ROSUVASTATIN [Suspect]
     Active Substance: ROSUVASTATIN
     Indication: Low density lipoprotein
     Dosage: UNK
     Route: 048
  6. ROSUVASTATIN [Suspect]
     Active Substance: ROSUVASTATIN
     Indication: Low density lipoprotein abnormal
  7. ATORVASTATIN [Suspect]
     Active Substance: ATORVASTATIN
     Indication: Low density lipoprotein abnormal
     Dosage: UNK
     Route: 065
  8. SIMVASTATIN [Suspect]
     Active Substance: SIMVASTATIN
     Indication: Low density lipoprotein abnormal
     Dosage: UNK
     Route: 065
  9. LOVASTATIN [Suspect]
     Active Substance: LOVASTATIN
     Indication: Low density lipoprotein abnormal
     Dosage: UNK
     Route: 065
  10. ICOSAPENT ETHYL [Suspect]
     Active Substance: ICOSAPENT ETHYL
     Indication: Low density lipoprotein abnormal
     Dosage: UNK
     Route: 065
  11. ICOSAPENT ETHYL [Suspect]
     Active Substance: ICOSAPENT ETHYL
     Indication: Low density lipoprotein
  12. LESCOL [Suspect]
     Active Substance: FLUVASTATIN SODIUM
     Indication: Low density lipoprotein
     Dosage: UNK
     Route: 065
  13. LIPITOR [Suspect]
     Active Substance: ATORVASTATIN CALCIUM
     Indication: Low density lipoprotein
     Dosage: UNK
     Route: 065
  14. LIPITOR [Suspect]
     Active Substance: ATORVASTATIN CALCIUM
     Indication: Low density lipoprotein abnormal
  15. COLESEVELAM HYDROCHLORIDE [Suspect]
     Active Substance: COLESEVELAM HYDROCHLORIDE
     Indication: Low density lipoprotein
     Dosage: UNK
     Route: 065
  16. COLESEVELAM HYDROCHLORIDE [Suspect]
     Active Substance: COLESEVELAM HYDROCHLORIDE
     Indication: Low density lipoprotein abnormal
  17. LOMITAPIDE MESYLATE [Suspect]
     Active Substance: LOMITAPIDE MESYLATE
     Indication: Low density lipoprotein abnormal
     Dosage: UNK
     Route: 065
  18. LOMITAPIDE MESYLATE [Suspect]
     Active Substance: LOMITAPIDE MESYLATE
     Indication: Low density lipoprotein
  19. MEVACOR [Suspect]
     Active Substance: LOVASTATIN
     Indication: Low density lipoprotein
     Dosage: UNK
     Route: 065
  20. MEVACOR [Suspect]
     Active Substance: LOVASTATIN
     Indication: Low density lipoprotein abnormal
  21. NIACIN [Suspect]
     Active Substance: NIACIN
     Indication: Low density lipoprotein
     Dosage: UNK
     Route: 065
  22. NIACIN [Suspect]
     Active Substance: NIACIN
     Indication: Low density lipoprotein abnormal
  23. CHOLESTYRAMINE [Suspect]
     Active Substance: CHOLESTYRAMINE
     Indication: Low density lipoprotein
     Dosage: UNK
     Route: 065
  24. CHOLESTYRAMINE [Suspect]
     Active Substance: CHOLESTYRAMINE
     Indication: Low density lipoprotein abnormal
  25. PRALUENT [Suspect]
     Active Substance: ALIROCUMAB
     Indication: Low density lipoprotein abnormal
     Dosage: UNK
     Route: 065
  26. PRALUENT [Suspect]
     Active Substance: ALIROCUMAB
     Indication: Low density lipoprotein
  27. REPATHA [Suspect]
     Active Substance: EVOLOCUMAB
     Indication: Low density lipoprotein abnormal
     Dosage: UNK
     Route: 058
  28. REPATHA [Suspect]
     Active Substance: EVOLOCUMAB
     Indication: Low density lipoprotein
  29. ZOCOR [Suspect]
     Active Substance: SIMVASTATIN
     Indication: Low density lipoprotein
     Dosage: UNK
     Route: 048
  30. ZOCOR [Suspect]
     Active Substance: SIMVASTATIN
     Indication: Low density lipoprotein abnormal
  31. CRESTOR [Suspect]
     Active Substance: ROSUVASTATIN CALCIUM
     Indication: Low density lipoprotein
     Dosage: UNK
     Route: 065
  32. JUXTAPID [Suspect]
     Active Substance: LOMITAPIDE MESYLATE
     Indication: Low density lipoprotein
     Dosage: UNK
     Route: 065
  33. VASCEPA [Suspect]
     Active Substance: ICOSAPENT ETHYL
     Indication: Low density lipoprotein
     Dosage: UNK
     Route: 065
  34. CHOLESTYRAMINE [Suspect]
     Active Substance: CHOLESTYRAMINE
     Indication: Low density lipoprotein abnormal
     Dosage: UNK
     Route: 065
  35. FLUVASTATIN SODIUM [Suspect]
     Active Substance: FLUVASTATIN SODIUM
     Indication: Low density lipoprotein abnormal
     Dosage: UNK
     Route: 065
  36. FLUVASTATIN SODIUM [Suspect]
     Active Substance: FLUVASTATIN SODIUM
     Indication: Low density lipoprotein
  37. NICOTINIC ACID [Suspect]
     Active Substance: NIACIN
     Indication: Low density lipoprotein abnormal
     Dosage: UNK
     Route: 065
  38. COLESEVELAM HYDROCHLORIDE [Suspect]
     Active Substance: COLESEVELAM HYDROCHLORIDE
     Indication: Low density lipoprotein abnormal
     Dosage: UNK
     Route: 065
  39. DOCONEXENT\ICOSAPENT ETHYL [Suspect]
     Active Substance: DOCONEXENT\ICOSAPENT ETHYL
     Indication: Low density lipoprotein
     Dosage: UNK
     Route: 065

REACTIONS (3)
  - Cerebrovascular accident [Unknown]
  - Myocardial infarction [Unknown]
  - Drug ineffective [Unknown]
